FAERS Safety Report 9186710 (Version 1)
Quarter: 2012Q4

REPORT INFORMATION
  Report Type: 
  Country: BE (occurrence: BE)
  Receive Date: 20121102
  Receipt Date: 20121102
  Transmission Date: 20130627
  Serious: Yes (Hospitalization, Other)
  Sender: FDA-Public Use
  Company Number: BE-JNJFOC-20121100211

PATIENT
  Sex: Male

DRUGS (5)
  1. XARELTO [Suspect]
     Indication: CEREBROVASCULAR ACCIDENT PROPHYLAXIS
     Route: 065
     Dates: start: 201204, end: 201208
  2. XARELTO [Suspect]
     Indication: ATRIAL FIBRILLATION
     Route: 065
     Dates: start: 201204, end: 201208
  3. CORDARONE [Concomitant]
     Indication: ATRIAL FIBRILLATION
  4. PRAVASTATIN [Concomitant]
  5. EMCONCOR [Concomitant]
     Indication: HYPERTENSION

REACTIONS (3)
  - Haemorrhage intracranial [Recovered/Resolved]
  - Type 2 diabetes mellitus [Unknown]
  - Epilepsy [Unknown]
